FAERS Safety Report 9478794 (Version 2)
Quarter: 2013Q3

REPORT INFORMATION
  Report Type: Spontaneous
  Country: US (occurrence: US)
  Receive Date: 20130827
  Receipt Date: 20130903
  Transmission Date: 20140515
  Serious: No
  Sender: FDA-Public Use
  Company Number: US-009507513-1308USA010442

PATIENT
  Sex: Male

DRUGS (1)
  1. CRIXIVAN [Suspect]
     Dosage: 1 STANDARD PACKAGE BOTTLE OF 12
     Route: 048

REACTIONS (3)
  - Product coating issue [Unknown]
  - Circumstance or information capable of leading to medication error [Unknown]
  - No adverse event [Unknown]
